FAERS Safety Report 22172764 (Version 1)
Quarter: 2023Q2

REPORT INFORMATION
  Report Type: Spontaneous
  Country: US (occurrence: US)
  Receive Date: 20230404
  Receipt Date: 20230404
  Transmission Date: 20230722
  Serious: No
  Sender: FDA-Public Use
  Company Number: US-PFIZER INC-PV202300061299

PATIENT
  Age: 66 Year
  Sex: Female

DRUGS (1)
  1. XALKORI [Suspect]
     Active Substance: CRIZOTINIB
     Indication: Hepatocellular carcinoma
     Dosage: ONE CAPSULE IN THE MORNING AND ONE CAPSULE BEFORE BEDTIME
     Route: 048

REACTIONS (1)
  - Peripheral swelling [Recovered/Resolved]
